FAERS Safety Report 5262394-7 (Version None)
Quarter: 2007Q1

REPORT INFORMATION
  Report Type: 
  Country: None (occurrence: None)
  Receive Date: 20070309
  Receipt Date: 20070309
  Transmission Date: 20070707
  Serious: Yes (Hospitalization)
  Sender: FDA-Public Use
  Company Number: None

PATIENT
  Sex: Female

DRUGS (1)
  1. TIGECYCLINE [Suspect]

REACTIONS (3)
  - INFECTION [None]
  - LEUKOCYTOCLASTIC VASCULITIS [None]
  - PYREXIA [None]
